FAERS Safety Report 5166277-2 (Version None)
Quarter: 2006Q4

REPORT INFORMATION
  Report Type: 
  Country: None (occurrence: None)
  Receive Date: 20060830
  Receipt Date: 20060520
  Transmission Date: 20070319
  Serious: No
  Sender: FDA-Public Use
  Company Number: 219875

PATIENT
  Age: 44 Year
  Sex: Female
  Weight: 96.6 kg

DRUGS (4)
  1. XOLAIR [Suspect]
     Indication: ASTHMA
     Dosage: 450 MG, 2/MONTH, SUBCUTANEOUS
     Route: 058
     Dates: start: 20050707
  2. SINGULAIR [Concomitant]
  3. ALBUTEROL INHALER (ALBUTEROL/ALBUTEROL SULFATE) [Concomitant]
  4. LEVBID (HYOSCYAMINE SULFATE) [Concomitant]

REACTIONS (1)
  - URINARY INCONTINENCE [None]
